FAERS Safety Report 6463279-0 (Version None)
Quarter: 2009Q4

REPORT INFORMATION
  Report Type: 
  Country: None (occurrence: None)
  Receive Date: 20091130
  Receipt Date: 20090615
  Transmission Date: 20100525
  Serious: Yes (Hospitalization)
  Sender: FDA-Public Use
  Company Number: US-AMGEN-QUU351716

PATIENT
  Sex: Male

DRUGS (2)
  1. ENBREL [Suspect]
     Indication: PSORIATIC ARTHROPATHY
     Route: 058
     Dates: start: 20080115
  2. ENBREL [Suspect]
     Indication: PSORIASIS

REACTIONS (3)
  - LOCALISED OEDEMA [None]
  - LYMPHADENOPATHY [None]
  - MYCOBACTERIAL INFECTION [None]
